FAERS Safety Report 5067249-9 (Version None)
Quarter: 2006Q3

REPORT INFORMATION
  Report Type: 
  Country: None (occurrence: None)
  Receive Date: 20060726
  Receipt Date: 20060714
  Transmission Date: 20061208
  Serious: Yes (Disabling, Other)
  Sender: FDA-Public Use
  Company Number: 2006080803

PATIENT
  Age: 61 Year
  Sex: Male

DRUGS (9)
  1. LYRICA [Suspect]
     Indication: RADICULAR PAIN
     Dosage: 150 MG, (75 MG, 2 IN 1 D), ORAL
     Route: 048
     Dates: start: 20060515
  2. PARACET          (PARACETAMOL) [Concomitant]
  3. OXYCONTIN [Concomitant]
  4. REMERON [Concomitant]
  5. DUPHALAC [Concomitant]
  6. LAXOBERAL (SODIUM PICOSULFATE) [Concomitant]
  7. MEDROL ACETATE [Concomitant]
  8. PROCREN (LEUPRORELIN ACETATE) [Concomitant]
  9. ZOMETA [Concomitant]

REACTIONS (4)
  - MALIGNANT NEOPLASM PROGRESSION [None]
  - METASTASES TO BONE [None]
  - METASTASES TO BONE MARROW [None]
  - PROSTATE CANCER [None]
